FAERS Safety Report 5206489-2 (Version None)
Quarter: 2006Q4

REPORT INFORMATION
  Report Type: 
  Country: None (occurrence: None)
  Receive Date: 20061026
  Receipt Date: 20060706
  Transmission Date: 20070319
  Serious: Yes (Other)
  Sender: FDA-Public Use
  Company Number: 2006085518

PATIENT
  Age: 45 Year
  Sex: Female
  Weight: 56.6996 kg

DRUGS (11)
  1. LYRICA [Suspect]
     Indication: NEUROPATHY
     Dosage: 300 MG (75 MG,2 IN 1 D), ORAL
     Route: 048
     Dates: start: 20060601
  2. LYRICA [Suspect]
     Indication: PAIN
     Dosage: 300 MG (75 MG,2 IN 1 D), ORAL
     Route: 048
     Dates: start: 20060601
  3. ASTELIN [Concomitant]
  4. AVONEX [Concomitant]
  5. BACLOFEN [Concomitant]
  6. CELEBREX [Concomitant]
  7. LOZOL [Concomitant]
  8. MIRALAX [Concomitant]
  9. PROVIGIL [Concomitant]
  10. SYMMETREL [Concomitant]
  11. VITAMINS [Concomitant]

REACTIONS (5)
  - BREAKTHROUGH PAIN [None]
  - HYPERSENSITIVITY [None]
  - INCORRECT DOSE ADMINISTERED [None]
  - PRURITUS [None]
  - SWELLING FACE [None]
